FAERS Safety Report 5950625-7 (Version None)
Quarter: 2008Q4

REPORT INFORMATION
  Report Type: 
  Country: None (occurrence: None)
  Receive Date: 20081112
  Receipt Date: 20081110
  Transmission Date: 20090506
  Serious: Yes (Other)
  Sender: FDA-Public Use
  Company Number: GB-TEVA-179400ISR

PATIENT
  Sex: Male

DRUGS (1)
  1. PHENYTOIN [Suspect]
     Route: 048

REACTIONS (5)
  - ANTICONVULSANT DRUG LEVEL DECREASED [None]
  - ANTICONVULSANT DRUG LEVEL INCREASED [None]
  - GASTROSTOMY TUBE INSERTION [None]
  - LEARNING DISORDER [None]
  - NEURODEGENERATIVE DISORDER [None]
